FAERS Safety Report 8521343-6 (Version None)
Quarter: 2012Q3

REPORT INFORMATION
  Report Type: 
  Country: None (occurrence: None)
  Receive Date: 20120717
  Receipt Date: 20120712
  Transmission Date: 20120928
  Serious: Yes (Death)
  Sender: FDA-Public Use
  Company Number: US-ASTELLAS-2012US006166

PATIENT
  Sex: Female

DRUGS (1)
  1. MYCAMINE [Suspect]
     Indication: GASTROINTESTINAL DISORDER
     Dosage: 100 MG, UID/QD
     Route: 042
     Dates: start: 20120516, end: 20120516

REACTIONS (2)
  - DEATH [None]
  - OFF LABEL USE [None]
